FAERS Safety Report 20848841 (Version 2)
Quarter: 2022Q2

REPORT INFORMATION
  Report Type: Spontaneous
  Country: US (occurrence: None)
  Receive Date: 20220519
  Receipt Date: 20220523
  Transmission Date: 20220721
  Serious: No
  Sender: FDA-Public Use
  Company Number: 2022A187806

PATIENT
  Sex: Male
  Weight: 81.6 kg

DRUGS (1)
  1. BUDESONIDE\FORMOTEROL\GLYCOPYRRONIUM [Suspect]
     Active Substance: BUDESONIDE\FORMOTEROL\GLYCOPYRRONIUM
     Indication: Chronic obstructive pulmonary disease
     Dosage: 160/9/4.87 MCG 120 DOSE INHALER TWO PUFFS TWICE A DAY
     Route: 055

REACTIONS (3)
  - Dyspnoea [Unknown]
  - Device use issue [Unknown]
  - Device malfunction [Unknown]
